FAERS Safety Report 16445898 (Version 2)
Quarter: 2019Q2

REPORT INFORMATION
  Report Type: Report from Study
  Country: None (occurrence: PT)
  Receive Date: 20190618
  Receipt Date: 20190627
  Transmission Date: 20190711
  Serious: Yes (Other)
  Sender: FDA-Public Use
  Company Number: PT-ABBVIE-19K-130-2821847-00

PATIENT
  Age: 61 Year
  Sex: Female

DRUGS (6)
  1. METHOTREXATE. [Concomitant]
     Active Substance: METHOTREXATE
     Indication: PSORIATIC ARTHROPATHY
     Dates: start: 2016
  2. METHOTREXATE. [Concomitant]
     Active Substance: METHOTREXATE
     Indication: CROHN^S DISEASE
  3. HUMIRA [Suspect]
     Active Substance: ADALIMUMAB
     Indication: PSORIATIC ARTHROPATHY
     Route: 058
     Dates: start: 20180208, end: 20190530
  4. HUMIRA [Suspect]
     Active Substance: ADALIMUMAB
     Route: 058
     Dates: start: 20190620
  5. OMEPRAZOLE. [Concomitant]
     Active Substance: OMEPRAZOLE
     Indication: CROHN^S DISEASE
     Dosage: FASTING, IN THE MORNING
     Route: 048
     Dates: start: 2016
  6. CANDESARTAN HYDROCHLOROTHIAZIDE [Concomitant]
     Active Substance: CANDESARTAN CILEXETIL\HYDROCHLOROTHIAZIDE
     Indication: HYPERTENSION
     Dosage: 16 MG + 12.5 MG; FASTING, IN THE MORNING
     Route: 048
     Dates: start: 2003

REACTIONS (4)
  - Gastrointestinal disorder [Recovered/Resolved]
  - Myalgia [Recovered/Resolved]
  - Fatigue [Recovered/Resolved]
  - Gastroenteritis [Recovered/Resolved]

NARRATIVE: CASE EVENT DATE: 2019
